FAERS Safety Report 6968874-8 (Version None)
Quarter: 2010Q3

REPORT INFORMATION
  Report Type: 
  Country: None (occurrence: None)
  Receive Date: 20100903
  Receipt Date: 20100903
  Transmission Date: 20110219
  Serious: Yes (Hospitalization)
  Sender: FDA-Public Use
  Company Number: None

PATIENT
  Sex: Female
  Weight: 109.54 kg

DRUGS (2)
  1. CARBOPLATIN [Suspect]
     Dosage: 190 MG
  2. TAXOL [Suspect]
     Dosage: 270 MG

REACTIONS (18)
  - ABDOMINAL ABSCESS [None]
  - ABDOMINAL PAIN UPPER [None]
  - ASCITES [None]
  - ASPIRATION [None]
  - AZOTAEMIA [None]
  - BLOOD ALBUMIN DECREASED [None]
  - BLOOD PH DECREASED [None]
  - BLOOD POTASSIUM INCREASED [None]
  - CARDIAC ARREST [None]
  - HAEMATOCRIT DECREASED [None]
  - HAEMOGLOBIN DECREASED [None]
  - HYPOTENSION [None]
  - PLATELET COUNT DECREASED [None]
  - PLEURAL EFFUSION [None]
  - RENAL FAILURE ACUTE [None]
  - RENAL TUBULAR NECROSIS [None]
  - SEPSIS [None]
  - STAPHYLOCOCCAL INFECTION [None]
